FAERS Safety Report 24327070 (Version 1)
Quarter: 2024Q3

REPORT INFORMATION
  Report Type: Spontaneous
  Country: US (occurrence: None)
  Receive Date: 20240917
  Receipt Date: 20240917
  Transmission Date: 20241017
  Serious: No
  Sender: ASTRAZENECA
  Company Number: 2024A164784

PATIENT
  Sex: Male

DRUGS (2)
  1. IMFINZI [Suspect]
     Active Substance: DURVALUMAB
     Indication: Liver disorder
  2. IMJUDO [Concomitant]
     Active Substance: TREMELIMUMAB\TREMELIMUMAB-ACTL

REACTIONS (1)
  - Rash [Unknown]
